FAERS Safety Report 16006220 (Version 2)
Quarter: 2020Q4

REPORT INFORMATION
  Report Type: Spontaneous
  Country: GB (occurrence: GB)
  Receive Date: 20190226
  Receipt Date: 20201203
  Transmission Date: 20210113
  Serious: Yes (Death)
  Sender: FDA-Public Use
  Company Number: GB-BAYER-2019-037141

PATIENT
  Age: 64 Year
  Sex: Male

DRUGS (3)
  1. APROTININ [Suspect]
     Active Substance: APROTININ
     Indication: ENDOCARDITIS
     Dosage: 10000 KIU TEST DOSE
     Route: 040
     Dates: start: 2018, end: 2018
  2. APROTININ [Suspect]
     Active Substance: APROTININ
     Indication: HEART VALVE REPLACEMENT
     Dosage: 500000 KIU, Q1HR
     Route: 041
     Dates: start: 2018, end: 2018
  3. APROTININ [Suspect]
     Active Substance: APROTININ
     Indication: ENDOCARDITIS
     Dosage: 2000000 KIU LOADING DOSE
     Route: 040
     Dates: start: 2018, end: 2018

REACTIONS (3)
  - Intracardiac thrombus [Fatal]
  - Off label use [None]
  - Product use in unapproved indication [None]

NARRATIVE: CASE EVENT DATE: 2018
